FAERS Safety Report 10427295 (Version 1)
Quarter: 2014Q3

REPORT INFORMATION
  Report Type: Spontaneous
  Country: US (occurrence: None)
  Receive Date: 20140902
  Receipt Date: 20140902
  Transmission Date: 20150326
  Serious: No
  Sender: FDA-Public Use
  Company Number: None

PATIENT
  Age: 38 Year
  Sex: Female
  Weight: 49.9 kg

DRUGS (2)
  1. TOPIRAMATE 100 MG ZYDUS [Suspect]
     Active Substance: TOPIRAMATE
     Indication: AFFECTIVE DISORDER
     Dosage: 3 PILLS ONCE DAILY TAKEN BY MOUTH
     Route: 048
     Dates: start: 20140801, end: 20140901
  2. TOPIRAMATE 100 MG ZYDUS [Suspect]
     Active Substance: TOPIRAMATE
     Indication: MIGRAINE
     Dosage: 3 PILLS ONCE DAILY TAKEN BY MOUTH
     Route: 048
     Dates: start: 20140801, end: 20140901

REACTIONS (7)
  - Depressed mood [None]
  - Drug effect decreased [None]
  - Product substitution issue [None]
  - Increased appetite [None]
  - Somnolence [None]
  - Product quality issue [None]
  - Headache [None]

NARRATIVE: CASE EVENT DATE: 20140817
